FAERS Safety Report 16325707 (Version 2)
Quarter: 2019Q2

REPORT INFORMATION
  Report Type: Spontaneous
  Country: US (occurrence: US)
  Receive Date: 20190517
  Receipt Date: 20190527
  Transmission Date: 20190711
  Serious: No
  Sender: FDA-Public Use
  Company Number: US-009507513-1905USA007370

PATIENT
  Age: 83 Year
  Sex: Female

DRUGS (2)
  1. SYMBICORT [Concomitant]
     Active Substance: BUDESONIDE\FORMOTEROL FUMARATE DIHYDRATE
  2. PROVENTIL [Suspect]
     Active Substance: ALBUTEROL
     Indication: RESPIRATION ABNORMAL
     Dosage: UNK
     Dates: start: 2014

REACTIONS (9)
  - Amnesia [Unknown]
  - Oxygen saturation decreased [Unknown]
  - Product quality issue [Not Recovered/Not Resolved]
  - Confusional state [Unknown]
  - Hypersensitivity [Not Recovered/Not Resolved]
  - Arthritis [Unknown]
  - Poor quality device used [Unknown]
  - Dyspnoea [Not Recovered/Not Resolved]
  - Incorrect dose administered [Unknown]

NARRATIVE: CASE EVENT DATE: 201904
